FAERS Safety Report 6398579-6 (Version None)
Quarter: 2009Q4

REPORT INFORMATION
  Report Type: 
  Country: None (occurrence: None)
  Receive Date: 20091007
  Receipt Date: 20090922
  Transmission Date: 20100525
  Serious: Yes (Other)
  Sender: FDA-Public Use
  Company Number: LTI2009A00270

PATIENT
  Age: 46 Year
  Sex: Female

DRUGS (3)
  1. ACTOPLUS MET [Suspect]
     Indication: TYPE 2 DIABETES MELLITUS
     Dosage: 2 TAB. (1 TAB., 2 IN 1 D) ORAL; ORAL
     Route: 048
     Dates: start: 20090701, end: 20090901
  2. ACTOPLUS MET [Suspect]
     Indication: TYPE 2 DIABETES MELLITUS
     Dosage: 2 TAB. (1 TAB., 2 IN 1 D) ORAL; ORAL
     Route: 048
     Dates: start: 20090901, end: 20090901
  3. MEDIATOR (BENFLUOREX HYDROCHLORIDE) [Suspect]

REACTIONS (1)
  - SUICIDAL IDEATION [None]
